FAERS Safety Report 16889073 (Version 2)
Quarter: 2019Q4

REPORT INFORMATION
  Report Type: Report from Study
  Country: US (occurrence: US)
  Receive Date: 20191007
  Receipt Date: 20191022
  Transmission Date: 20200122
  Serious: Yes (Other)
  Sender: FDA-Public Use
  Company Number: US-SA-2019SA259650

PATIENT
  Age: 49 Year
  Sex: Male

DRUGS (1)
  1. ALEMTUZUMAB [Suspect]
     Active Substance: ALEMTUZUMAB
     Indication: MULTIPLE SCLEROSIS
     Dosage: 12 MG
     Route: 041
     Dates: start: 20190826, end: 20190830

REACTIONS (7)
  - Choking [Recovered/Resolved]
  - Asthenia [Unknown]
  - Speech disorder [Unknown]
  - Memory impairment [Unknown]
  - Fatigue [Unknown]
  - Weight decreased [Unknown]
  - Weight fluctuation [Unknown]
